FAERS Safety Report 9689158 (Version 2)
Quarter: 2013Q4

REPORT INFORMATION
  Report Type: Spontaneous
  Country: US (occurrence: None)
  Receive Date: 20131113
  Receipt Date: 20131220
  Transmission Date: 20140711
  Serious: Yes (Other)
  Sender: FDA-Public Use
  Company Number: US-013474

PATIENT
  Age: 55 Year
  Sex: Female

DRUGS (1)
  1. PICO-SALAX [Suspect]
     Indication: BOWEL PREPARATION
     Dosage: 1ST PACK AT 7:40PM AND 2ND PACK AT 10:45PM
     Dates: start: 20131029, end: 20131029

REACTIONS (8)
  - Abdominal pain [None]
  - Loss of consciousness [None]
  - Dehydration [None]
  - Blood potassium decreased [None]
  - Fall [None]
  - Contusion [None]
  - Head injury [None]
  - Tooth fracture [None]
